FAERS Safety Report 8117083-8 (Version None)
Quarter: 2011Q4

REPORT INFORMATION
  Report Type: 
  Country: None (occurrence: None)
  Receive Date: 20111227
  Receipt Date: 20110429
  Transmission Date: 20120403
  Serious: Yes (Other)
  Sender: FDA-Public Use
  Company Number: PHHY2011US17478

PATIENT
  Age: 47 Year
  Sex: Female
  Weight: 69.8 kg

DRUGS (1)
  1. FEMARA [Suspect]
     Indication: BREAST CANCER FEMALE
     Dosage: 2.5 MG, DAILY, ORAL
     Route: 048
     Dates: start: 20101111, end: 20110222

REACTIONS (5)
  - ARTHRALGIA [None]
  - PAIN IN EXTREMITY [None]
  - HEADACHE [None]
  - HEPATOTOXICITY [None]
  - MYALGIA [None]
